FAERS Safety Report 6234270-4 (Version None)
Quarter: 2009Q2

REPORT INFORMATION
  Report Type: 
  Country: None (occurrence: None)
  Receive Date: 20090618
  Receipt Date: 20090615
  Transmission Date: 20091009
  Serious: No
  Sender: FDA-Public Use
  Company Number: US-JNJFOC-20090405476

PATIENT
  Sex: Female
  Weight: 63.5 kg

DRUGS (2)
  1. INVEGA [Suspect]
     Indication: BIPOLAR DISORDER
     Route: 048
  2. VALIUM [Concomitant]
     Indication: BIPOLAR DISORDER

REACTIONS (3)
  - AMENORRHOEA [None]
  - BLOOD URINE PRESENT [None]
  - URINARY TRACT INFECTION [None]
